FAERS Safety Report 4568671-7 (Version None)
Quarter: 2005Q1

REPORT INFORMATION
  Report Type: 
  Country: None (occurrence: None)
  Receive Date: 20050202
  Receipt Date: 20041012
  Transmission Date: 20050727
  Serious: Yes (Life-Threatening, Hospitalization)
  Sender: FDA-Public Use
  Company Number: DE-MERCK-0410DEU00377

PATIENT
  Age: 79 Year
  Sex: Female

DRUGS (2)
  1. FOSAMAX [Suspect]
     Indication: OSTEOPOROSIS POSTMENOPAUSAL
     Route: 048
     Dates: start: 20040101, end: 20041001
  2. [THERAPY UNSPECIFIED] [Concomitant]
     Route: 065

REACTIONS (6)
  - ANAEMIA [None]
  - COLONIC POLYP [None]
  - GASTRITIS [None]
  - HIATUS HERNIA [None]
  - ILEAL ULCER [None]
  - SMALL INTESTINAL HAEMORRHAGE [None]
